FAERS Safety Report 4390510-8 (Version None)
Quarter: 2004Q2

REPORT INFORMATION
  Report Type: 
  Country: None (occurrence: None)
  Receive Date: 20040630
  Receipt Date: 20040617
  Transmission Date: 20050107
  Serious: Yes (Hospitalization)
  Sender: FDA-Public Use
  Company Number: US-JNJFOC-20040604642

PATIENT
  Age: 57 Year
  Sex: Female

DRUGS (8)
  1. DURAGESIC [Suspect]
     Dosage: SEE IMAGE
     Route: 062
     Dates: start: 20030601, end: 20030601
  2. DURAGESIC [Suspect]
     Dosage: SEE IMAGE
     Route: 062
     Dates: start: 20030601
  3. BACOFONE (BACLOFEN) [Concomitant]
  4. ATENOLOL [Concomitant]
  5. NEURONTIN [Concomitant]
  6. CELEBREX [Concomitant]
  7. WATERPILL (DIURETICS) [Concomitant]
  8. CLONIDINE [Concomitant]

REACTIONS (10)
  - CIRCULATORY COLLAPSE [None]
  - CONFUSIONAL STATE [None]
  - DRUG EFFECT DECREASED [None]
  - DYSSTASIA [None]
  - INSOMNIA [None]
  - IRRITABILITY [None]
  - PAIN IN EXTREMITY [None]
  - SENSATION OF HEAVINESS [None]
  - SOMNOLENCE [None]
  - TREMOR [None]
